FAERS Safety Report 7766626-2 (Version None)
Quarter: 2011Q3

REPORT INFORMATION
  Report Type: 
  Country: None (occurrence: None)
  Receive Date: 20110916
  Receipt Date: 20110901
  Transmission Date: 20111222
  Serious: Yes (Other)
  Sender: FDA-Public Use
  Company Number: AUR-APL-2011-04902

PATIENT
  Age: 67 Year
  Sex: Female
  Weight: 54.8852 kg

DRUGS (2)
  1. LEVOXYL [Concomitant]
  2. SIMVASTATIN [Suspect]
     Indication: BLOOD CHOLESTEROL INCREASED
     Dosage: 1 DOSAGE FORMS (1 DOSAGE FORMS, 1 IN 1 D), PER ORAL
     Route: 048
     Dates: start: 20110501

REACTIONS (3)
  - MYALGIA [None]
  - ARTHRALGIA [None]
  - BONE PAIN [None]
